FAERS Safety Report 9518535 (Version 1)
Quarter: 2013Q1

REPORT INFORMATION
  Report Type: Spontaneous
  Country: US (occurrence: None)
  Receive Date: 20130305
  Receipt Date: 20130305
  Transmission Date: 20140127
  Serious: Yes (Other)
  Sender: FDA-Public Use
  Company Number: 163-21880-12072402

PATIENT
  Age: 49 Year
  Sex: Female
  Weight: 64.41 kg

DRUGS (16)
  1. REVLIMID [Suspect]
     Indication: PLASMA CELL MYELOMA
     Dosage: 1 IN 1 DAY
     Route: 048
     Dates: start: 20120120
  2. ARANESP (DARBEPOETIN ALFA) (UNKNOWN) [Concomitant]
  3. ATIVAN (LORAZEPAM) (UNKNOWN) [Concomitant]
  4. B-COMPLEX (BECOSYM FORTE) (UNKNOWN) [Concomitant]
  5. CALCIUM + D (OS-CAL) (UNKNOWN) [Concomitant]
  6. COUMADIN (WARFARIN SODIUM) (UNKNOWN) [Concomitant]
  7. DECADRON [Concomitant]
  8. IRON [Suspect]
  9. MEDROXYPROGESTERONE ACETATE [Suspect]
  10. OMEGA-3 ACIDS [Suspect]
  11. PROCHLORPERAZINE (PROCHLORPERAZINE) (UNKNOWN) [Concomitant]
  12. TRAMADOL [Suspect]
  13. VELCADE (BORTEZOMIB0 (UNKNOWN) [Concomitant]
  14. VITAMIN C [Concomitant]
  15. VITAMIN D (ERGOCALCIFEROL) (UNKNOWN) [Concomitant]
  16. PROGESTERONE (PROGESTERONE) (UNKNOWN) [Concomitant]

REACTIONS (2)
  - Menstruation irregular [None]
  - Metrorrhagia [None]
